FAERS Safety Report 20257579 (Version 2)
Quarter: 2022Q1

REPORT INFORMATION
  Report Type: Report from Study
  Country: US (occurrence: US)
  Receive Date: 20211230
  Receipt Date: 20220204
  Transmission Date: 20220423
  Serious: Yes (Other)
  Sender: FDA-Public Use
  Company Number: US-BEH-2021138132

PATIENT
  Age: 74 Year
  Sex: Female
  Weight: 40.816 kg

DRUGS (9)
  1. HIZENTRA [Suspect]
     Active Substance: HUMAN IMMUNOGLOBULIN G
     Indication: Hypogammaglobulinaemia
     Dosage: 14 GRAM, QW
     Route: 058
     Dates: start: 20211030
  2. HIZENTRA [Suspect]
     Active Substance: HUMAN IMMUNOGLOBULIN G
     Indication: Immunodeficiency common variable
     Dosage: UNK
     Route: 058
     Dates: start: 20211030
  3. HIZENTRA [Suspect]
     Active Substance: HUMAN IMMUNOGLOBULIN G
     Dosage: UNK
     Route: 058
     Dates: start: 20211106
  4. HIZENTRA [Suspect]
     Active Substance: HUMAN IMMUNOGLOBULIN G
     Dosage: 14 GRAM
     Route: 065
  5. HIZENTRA [Suspect]
     Active Substance: HUMAN IMMUNOGLOBULIN G
     Dosage: 14 GRAM
     Route: 065
  6. HIZENTRA [Suspect]
     Active Substance: HUMAN IMMUNOGLOBULIN G
     Dosage: 2 UNK
     Route: 058
     Dates: start: 202111
  7. HIZENTRA [Suspect]
     Active Substance: HUMAN IMMUNOGLOBULIN G
     Dosage: 2 UNK
     Route: 058
     Dates: start: 202111
  8. BUMETANIDE [Concomitant]
     Active Substance: BUMETANIDE
     Indication: Product used for unknown indication
     Dosage: 2 MILLIGRAM, QW
  9. BUMETANIDE [Concomitant]
     Active Substance: BUMETANIDE
     Dosage: 3 MILLIGRAM, QW

REACTIONS (21)
  - Headache [Recovering/Resolving]
  - Diarrhoea [Recovered/Resolved]
  - Abdominal discomfort [Not Recovered/Not Resolved]
  - Rectal tenesmus [Not Recovered/Not Resolved]
  - Hyperglycaemia [Recovering/Resolving]
  - Somnolence [Recovering/Resolving]
  - Feeling abnormal [Recovering/Resolving]
  - Hyperglycaemia [Recovering/Resolving]
  - Hyperglycaemia [Recovering/Resolving]
  - Weight increased [Recovering/Resolving]
  - Dyspnoea exertional [Recovering/Resolving]
  - Drug effect less than expected [Recovering/Resolving]
  - Hypervolaemia [Unknown]
  - Blood glucose increased [Unknown]
  - Somnolence [Unknown]
  - Fatigue [Unknown]
  - Blood glucose increased [Unknown]
  - Back pain [Unknown]
  - Blood glucose fluctuation [Unknown]
  - Dyspnoea [Unknown]
  - Drug effect less than expected [Unknown]

NARRATIVE: CASE EVENT DATE: 20211030
